FAERS Safety Report 4383637-8 (Version None)
Quarter: 2004Q2

REPORT INFORMATION
  Report Type: 
  Country: None (occurrence: None)
  Receive Date: 20040623
  Receipt Date: 20040119
  Transmission Date: 20050107
  Serious: Yes (Other)
  Sender: FDA-Public Use
  Company Number: US-GLAXOSMITHKLINE-A0494897A

PATIENT
  Age: 64 Year
  Sex: Female

DRUGS (5)
  1. ADVAIR DISKUS 100/50 [Suspect]
     Indication: ASTHMA
     Dosage: 1PUFF TWICE PER DAY
     Route: 055
     Dates: start: 20031218, end: 20040108
  2. SEREVENT [Suspect]
     Indication: ASTHMA
     Route: 055
  3. SEREVENT [Suspect]
     Route: 055
  4. ALBUTEROL [Concomitant]
  5. QVAR 40 [Concomitant]

REACTIONS (18)
  - BLOOD GASES ABNORMAL [None]
  - BRONCHITIS [None]
  - CHOKING SENSATION [None]
  - COUGH [None]
  - DRUG INEFFECTIVE [None]
  - DYSPEPSIA [None]
  - DYSPHONIA [None]
  - DYSPNOEA [None]
  - GASTROOESOPHAGEAL REFLUX DISEASE [None]
  - HEART RATE INCREASED [None]
  - HOARSENESS [None]
  - INFECTION [None]
  - LARYNGOSPASM [None]
  - PHARYNGEAL ERYTHEMA [None]
  - PHARYNGITIS [None]
  - PRODUCTIVE COUGH [None]
  - THROAT IRRITATION [None]
  - WHEEZING [None]
